FAERS Safety Report 16889626 (Version 3)
Quarter: 2019Q4

REPORT INFORMATION
  Report Type: Spontaneous
  Country: AR (occurrence: AR)
  Receive Date: 20191007
  Receipt Date: 20191021
  Transmission Date: 20200122
  Serious: Yes (Hospitalization, Other)
  Sender: FDA-Public Use
  Company Number: AR-PFIZER INC-2019425813

PATIENT
  Age: 81 Year
  Sex: Female

DRUGS (5)
  1. FEMOREL [Concomitant]
     Dosage: UNK, MONTHLY
  2. DIOVAN [Concomitant]
     Active Substance: VALSARTAN
     Dosage: 320 MG, DAILY
  3. RELVAR [Concomitant]
     Active Substance: FLUTICASONE FUROATE\VILANTEROL TRIFENATATE
     Dosage: UNK, DAILY
  4. SINTROM [Concomitant]
     Active Substance: ACENOCOUMAROL
     Dosage: 0.5 DF, DAILY
  5. XELJANZ [Suspect]
     Active Substance: TOFACITINIB CITRATE
     Indication: RHEUMATOID ARTHRITIS
     Dosage: 5 MG, 2X/DAY
     Dates: start: 20170412, end: 201909

REACTIONS (4)
  - Bronchial disorder [Not Recovered/Not Resolved]
  - Pulmonary fibrosis [Recovering/Resolving]
  - Condition aggravated [Recovering/Resolving]
  - Pneumonia [Recovered/Resolved]

NARRATIVE: CASE EVENT DATE: 20190920
